FAERS Safety Report 9351031 (Version 1)
Quarter: 2013Q2

REPORT INFORMATION
  Report Type: Report from Study
  Country: TR (occurrence: TR)
  Receive Date: 20130617
  Receipt Date: 20130617
  Transmission Date: 20140414
  Serious: Yes (Other)
  Sender: FDA-Public Use
  Company Number: TR-SANOFI-AVENTIS-2013SA060641

PATIENT
  Sex: 0

DRUGS (11)
  1. PETHIDINE HYDROCHLORIDE [Suspect]
     Indication: POSTOPERATIVE ANALGESIA
     Dosage: INTRAVENOUS PATIENT CONTROLLED ANALGESIA USING 10MG/ML MEPIRIDINE SOLUTION, WITH 1 OR 1.5 ML  BOLUS.
     Route: 040
  2. PETHIDINE HYDROCHLORIDE [Suspect]
     Indication: POSTOPERATIVE ANALGESIA
     Dosage: RESCUE ANALGESIA
     Route: 065
  3. PARACETAMOL [Concomitant]
     Route: 048
  4. CEFAZOLIN SODIUM [Concomitant]
     Indication: ANTIBIOTIC PROPHYLAXIS
     Route: 042
  5. THIOPENTAL SODIUM [Concomitant]
     Indication: GENERAL ANAESTHESIA
     Dosage: DOSE: 3 TO 5 MG/KG
  6. ROCURONIUM BROMIDE [Concomitant]
     Indication: GENERAL ANAESTHESIA
  7. SEVOFLURANE [Concomitant]
     Indication: GENERAL ANAESTHESIA
  8. NITROUS OXIDE [Concomitant]
     Indication: GENERAL ANAESTHESIA
  9. MIDAZOLAM [Concomitant]
  10. ATROPINE SULFATE [Concomitant]
     Route: 030
  11. OXYGEN [Concomitant]

REACTIONS (1)
  - Ileus [Unknown]
